FAERS Safety Report 9200116 (Version 2)
Quarter: 2014Q3

REPORT INFORMATION
  Report Type: Report from Study
  Country: US (occurrence: US)
  Receive Date: 20130329
  Receipt Date: 20140728
  Transmission Date: 20150326
  Serious: Yes (Other)
  Sender: FDA-Public Use
  Company Number: US-SANOFI-AVENTIS-2013SA031955

PATIENT
  Age: 43 Year
  Sex: Female

DRUGS (1)
  1. AUBAGIO [Suspect]
     Active Substance: TERIFLUNOMIDE
     Indication: MULTIPLE SCLEROSIS
     Route: 048
     Dates: start: 20130225

REACTIONS (8)
  - Fall [Unknown]
  - Chest discomfort [Unknown]
  - Limb crushing injury [Unknown]
  - Dizziness [Unknown]
  - Loss of consciousness [Unknown]
  - Drug dose omission [Unknown]
  - Contusion [Unknown]
  - Chest pain [Unknown]

NARRATIVE: CASE EVENT DATE: 20130316
